FAERS Safety Report 19576396 (Version 1)
Quarter: 2021Q3

REPORT INFORMATION
  Report Type: Spontaneous
  Country: US (occurrence: US)
  Receive Date: 20210717
  Receipt Date: 20210717
  Transmission Date: 20211014
  Serious: Yes (Hospitalization)
  Sender: FDA-Public Use
  Company Number: None

PATIENT
  Age: 80 Year
  Sex: Female
  Weight: 85.2 kg

DRUGS (2)
  1. BEVACIZUMAB (RHUMAB VEGF) [Suspect]
     Active Substance: BEVACIZUMAB
     Dates: end: 20210625
  2. DOXIL [Suspect]
     Active Substance: DOXORUBICIN HYDROCHLORIDE
     Dates: end: 20210625

REACTIONS (6)
  - Hypophagia [None]
  - Peripheral swelling [None]
  - Nausea [None]
  - Vomiting [None]
  - Failure to thrive [None]
  - Decubitus ulcer [None]

NARRATIVE: CASE EVENT DATE: 20210708
